FAERS Safety Report 17369215 (Version 1)
Quarter: 2020Q1

REPORT INFORMATION
  Report Type: Spontaneous
  Country: US (occurrence: US)
  Receive Date: 20190908
  Receipt Date: 20190908
  Transmission Date: 20200409
  Serious: Yes (Life-Threatening, Hospitalization)
  Sender: FDA-Public Use
  Company Number: None

PATIENT
  Age: 25 Year
  Sex: Female

DRUGS (1)
  1. THC VAPE DANK STRAWBERRY [Suspect]
     Active Substance: .DELTA.8-TETRAHYDROCANNABINOL\DEVICE\HERBALS
     Route: 055

REACTIONS (7)
  - Dyspnoea [None]
  - Respiratory failure [None]
  - White blood cell count increased [None]
  - Pneumonia [None]
  - Red blood cell sedimentation rate increased [None]
  - Drug screen positive [None]
  - C-reactive protein increased [None]
